FAERS Safety Report 5049389-3 (Version None)
Quarter: 2006Q2

REPORT INFORMATION
  Report Type: 
  Country: None (occurrence: None)
  Receive Date: 20060613
  Receipt Date: 20060502
  Transmission Date: 20061013
  Serious: No
  Sender: FDA-Public Use
  Company Number: 2006-01034

PATIENT
  Age: 70 Year
  Sex: Male
  Weight: 86.2 kg

DRUGS (8)
  1. VELCADE [Suspect]
     Indication: MULTIPLE MYELOMA
     Dosage: INTRAVENOUS
     Route: 030
     Dates: start: 20060320
  2. GLYBURIDE [Concomitant]
  3. TRAMADOL HCL [Concomitant]
  4. PROTONIX [Concomitant]
  5. NORVASC [Concomitant]
  6. COREG [Concomitant]
  7. COUMADIN [Concomitant]
  8. BUTALBITAL [Concomitant]

REACTIONS (5)
  - ALOPECIA [None]
  - ASTHENIA [None]
  - HYPOTRICHOSIS [None]
  - PAIN IN EXTREMITY [None]
  - SENSATION OF HEAVINESS [None]
